FAERS Safety Report 20512991 (Version 1)
Quarter: 2022Q1

REPORT INFORMATION
  Report Type: Spontaneous
  Country: US (occurrence: US)
  Receive Date: 20220224
  Receipt Date: 20220224
  Transmission Date: 20220423
  Serious: No
  Sender: FDA-Public Use
  Company Number: US-AMNEAL PHARMACEUTICALS-2021-AMRX-00177

PATIENT
  Sex: Male

DRUGS (1)
  1. RYTARY [Interacting]
     Active Substance: CARBIDOPA\LEVODOPA
     Indication: Product used for unknown indication
     Dosage: UNK
     Route: 065

REACTIONS (3)
  - Lethargy [Not Recovered/Not Resolved]
  - Musculoskeletal stiffness [Unknown]
  - Labelled drug-food interaction medication error [Unknown]
